FAERS Safety Report 8266410-X (Version None)
Quarter: 2012Q2

REPORT INFORMATION
  Report Type: 
  Country: None (occurrence: None)
  Receive Date: 20120406
  Receipt Date: 20120328
  Transmission Date: 20120825
  Serious: Yes (Hospitalization)
  Sender: FDA-Public Use
  Company Number: US-ASTRAZENECA-2012SE20020

PATIENT
  Age: 22981 Day
  Sex: Female

DRUGS (15)
  1. ASPIRIN [Concomitant]
     Route: 048
     Dates: start: 20110310
  2. AZD6140 [Suspect]
     Route: 048
     Dates: start: 20120222
  3. ATROVENT [Concomitant]
     Indication: ASTHMA
     Dosage: AROUND EVERY TWO MONTHS
     Route: 055
  4. PREGABALIN [Suspect]
     Indication: PAIN
     Route: 048
     Dates: end: 20120217
  5. METOPROLOL SUCCINATE EXTENDED RELEASE [Concomitant]
     Indication: HYPERTENSION
     Route: 048
  6. ATROVENT [Concomitant]
     Indication: CHRONIC OBSTRUCTIVE PULMONARY DISEASE
     Dosage: AROUND EVERY TWO MONTHS
     Route: 055
  7. LISINOPRIL AND HYDROCHLOROTHIAZIDE [Concomitant]
     Indication: HYPERTENSION
     Route: 048
  8. ARTIFICIAL TEARS [Concomitant]
     Indication: DRY EYE
     Route: 047
  9. ALLOPURINOL [Concomitant]
     Indication: GOUT
     Route: 048
  10. CRESTOR [Concomitant]
     Indication: HYPERLIPIDAEMIA
     Route: 048
  11. AZD6140 [Suspect]
     Indication: CORONARY ARTERY DISEASE
     Route: 048
     Dates: start: 20111216
  12. BACLOFEN [Suspect]
     Indication: PAIN
     Route: 048
     Dates: end: 20120217
  13. TRAZODONE HCL [Concomitant]
     Indication: INSOMNIA
     Route: 048
  14. SALSALATE [Concomitant]
     Indication: PAIN
     Route: 048
  15. ZYRTEC [Concomitant]
     Indication: RHINITIS ALLERGIC
     Route: 048

REACTIONS (1)
  - TOXIC ENCEPHALOPATHY [None]
